FAERS Safety Report 5495037-8 (Version None)
Quarter: 2007Q4

REPORT INFORMATION
  Report Type: 
  Country: None (occurrence: None)
  Receive Date: 20071024
  Receipt Date: 20071010
  Transmission Date: 20080405
  Serious: Yes (Death, Other)
  Sender: FDA-Public Use
  Company Number: CA-SHR-CAN-2002-001345

PATIENT
  Age: 83 Year
  Sex: Female

DRUGS (20)
  1. BETASERON [Suspect]
     Indication: MULTIPLE SCLEROSIS
     Dosage: 8 MIU, EVERY 2D
     Route: 058
     Dates: start: 19990915, end: 20021111
  2. TEMAZEPAM [Concomitant]
     Dosage: 30 MG, BED T.
     Route: 048
  3. NOVOQUININE [Concomitant]
     Dosage: 200 MG, BED T.
     Route: 048
  4. TYLENOL W/ CODEINE NO. 2 [Concomitant]
     Dosage: UNK, AS REQ'D
     Route: 048
  5. NOVOPROFEN [Concomitant]
     Dosage: 400 MG, AS REQ'D
     Route: 048
  6. LACTULOSE [Concomitant]
     Dosage: UNK, AS REQ'D
     Route: 048
  7. GLYCERIN [Concomitant]
     Dosage: UNK, AS REQ'D
     Route: 054
  8. ROBAXACET [Concomitant]
     Dosage: UNK, AS REQ'D
  9. ASAPHEN [Concomitant]
     Dosage: 80 MG, 1X/DAY
     Route: 048
  10. PLAVIX [Concomitant]
     Dosage: 75 MG, 1X/DAY
     Route: 048
  11. NOVOPUROL [Concomitant]
     Dosage: 300 MG, 1X/DAY
     Route: 048
  12. ADALAT CC [Concomitant]
     Dosage: 90 MG, 1X/DAY
     Route: 048
  13. NOVOTRIAMZIDE [Concomitant]
     Dosage: UNK, 1X/DAY
     Route: 048
  14. ALTACE [Concomitant]
     Dosage: 20 MG, 1X/DAY
     Route: 048
  15. ALTI-TERAZOSIN [Concomitant]
     Dosage: 2 MG, 2X/DAY
     Route: 048
  16. METOPROLOL [Concomitant]
     Dosage: 75 MG, 1X/DAY
     Route: 048
  17. METOPROLOL [Concomitant]
     Dosage: 50 MG, 1X/DAY
  18. LIPITOR [Concomitant]
     Dosage: 10 MG, 1X/DAY
  19. SERTRALINE [Concomitant]
     Dosage: 50 MG, 1X/DAY
     Route: 048
  20. HYDROCHLOROTHIAZIDE [Concomitant]

REACTIONS (4)
  - DEATH [None]
  - MALAISE [None]
  - MUSCULOSKELETAL STIFFNESS [None]
  - PANCREATIC CARCINOMA [None]
